FAERS Safety Report 14868301 (Version 1)
Quarter: 2018Q2

REPORT INFORMATION
  Report Type: Spontaneous
  Country: US (occurrence: US)
  Receive Date: 20180509
  Receipt Date: 20180509
  Transmission Date: 20180711
  Serious: Yes (Hospitalization, Other)
  Sender: FDA-Public Use
  Company Number: PHEH2018US016794

PATIENT
  Sex: Male
  Weight: 86 kg

DRUGS (10)
  1. FLUDARABINE PHOSPHATE. [Suspect]
     Active Substance: FLUDARABINE PHOSPHATE
     Indication: PHILADELPHIA CHROMOSOME POSITIVE
     Dosage: UNK
     Route: 065
     Dates: start: 20170323
  2. FLUDARABINE PHOSPHATE. [Suspect]
     Active Substance: FLUDARABINE PHOSPHATE
     Indication: B PRECURSOR TYPE ACUTE LEUKAEMIA
  3. IDARUBICIN [Suspect]
     Active Substance: IDARUBICIN
     Indication: PHILADELPHIA CHROMOSOME POSITIVE
     Dosage: UNK
     Route: 065
     Dates: start: 20170323
  4. ICLUSIG [Suspect]
     Active Substance: PONATINIB
     Indication: B PRECURSOR TYPE ACUTE LEUKAEMIA
     Dosage: 15 MG, QD
     Route: 048
  5. IDARUBICIN [Suspect]
     Active Substance: IDARUBICIN
     Indication: B PRECURSOR TYPE ACUTE LEUKAEMIA
  6. CYTARABINE. [Suspect]
     Active Substance: CYTARABINE
     Indication: PHILADELPHIA CHROMOSOME POSITIVE
     Dosage: UNK
     Route: 065
     Dates: start: 20170323
  7. ICLUSIG [Suspect]
     Active Substance: PONATINIB
     Indication: PHILADELPHIA CHROMOSOME POSITIVE
     Dosage: 30 MG, QD
     Route: 048
     Dates: start: 20170323
  8. CYTARABINE. [Suspect]
     Active Substance: CYTARABINE
     Indication: B PRECURSOR TYPE ACUTE LEUKAEMIA
  9. VINCRISTINE SULPHATE [Suspect]
     Active Substance: VINCRISTINE SULFATE
     Indication: PHILADELPHIA CHROMOSOME POSITIVE
     Dosage: UNK
     Route: 065
     Dates: start: 20170323
  10. VINCRISTINE SULPHATE [Suspect]
     Active Substance: VINCRISTINE SULFATE
     Indication: B PRECURSOR TYPE ACUTE LEUKAEMIA

REACTIONS (3)
  - Thrombocytopenia [Not Recovered/Not Resolved]
  - Cytopenia [Not Recovered/Not Resolved]
  - Neutropenia [Not Recovered/Not Resolved]
